FAERS Safety Report 18856857 (Version 1)
Quarter: 2021Q1

REPORT INFORMATION
  Report Type: Spontaneous
  Country: US (occurrence: US)
  Receive Date: 20210208
  Receipt Date: 20210208
  Transmission Date: 20210420
  Serious: Yes (Other)
  Sender: FDA-Public Use
  Company Number: US-BEH-2021127791

PATIENT
  Age: 59 Year
  Sex: Female

DRUGS (1)
  1. HAEGARDA [Suspect]
     Active Substance: HUMAN C1-ESTERASE INHIBITOR
     Dosage: 4000 INTERNATIONAL UNIT
     Route: 058
     Dates: start: 2019

REACTIONS (3)
  - Product dose omission issue [Unknown]
  - No adverse event [Unknown]
  - Unevaluable event [Unknown]

NARRATIVE: CASE EVENT DATE: 202101
